FAERS Safety Report 9159382 (Version 1)
Quarter: 2013Q1

REPORT INFORMATION
  Report Type: Spontaneous
  Country: US (occurrence: None)
  Receive Date: 20130312
  Receipt Date: 20130312
  Transmission Date: 20140127
  Serious: Yes (Other)
  Sender: FDA-Public Use
  Company Number: None

PATIENT
  Age: 86 Year
  Sex: Female
  Weight: 72.58 kg

DRUGS (2)
  1. OFLOXACIN [Suspect]
     Indication: MIDDLE EAR EFFUSION
     Dosage: 5 DROPS PER NIGHT- OTIC
  2. OFLOXACIN [Suspect]
     Indication: EAR INFECTION
     Dosage: 5 DROPS PER NIGHT- OTIC

REACTIONS (3)
  - Somnambulism [None]
  - Abnormal sleep-related event [None]
  - Sleep talking [None]
